FAERS Safety Report 6316594-5 (Version None)
Quarter: 2009Q3

REPORT INFORMATION
  Report Type: 
  Country: None (occurrence: None)
  Receive Date: 20090820
  Receipt Date: 20090811
  Transmission Date: 20100115
  Serious: Yes (Hospitalization)
  Sender: FDA-Public Use
  Company Number: CA-CELGENEUS-028-21880-09080803

PATIENT
  Sex: Female

DRUGS (7)
  1. REVLIMID [Suspect]
     Indication: MULTIPLE MYELOMA
     Route: 048
     Dates: start: 20090422, end: 20090428
  2. REVLIMID [Suspect]
     Route: 048
     Dates: start: 20090502, end: 20090501
  3. REVLIMID [Suspect]
     Route: 048
     Dates: start: 20090501, end: 20090101
  4. DEXAMETHASONE [Suspect]
     Indication: DRUG USE FOR UNKNOWN INDICATION
     Route: 048
     Dates: start: 20081216
  5. WARFARIN [Concomitant]
     Route: 048
     Dates: start: 20090421, end: 20090501
  6. MAVIK [Concomitant]
     Indication: HYPERTENSION
     Route: 048
     Dates: start: 20090210
  7. RANITIDINE [Concomitant]
     Indication: DRUG USE FOR UNKNOWN INDICATION
     Route: 048
     Dates: start: 20090421, end: 20090501

REACTIONS (5)
  - ASTHENIA [None]
  - CONFUSIONAL STATE [None]
  - EPISTAXIS [None]
  - IRRITABILITY [None]
  - MONOPLEGIA [None]
